FAERS Safety Report 23472577 (Version 1)
Quarter: 2024Q1

REPORT INFORMATION
  Report Type: Spontaneous
  Country: CA (occurrence: CA)
  Receive Date: 20240202
  Receipt Date: 20240202
  Transmission Date: 20240409
  Serious: Yes (Other)
  Sender: FDA-Public Use
  Company Number: CA-BIOMARINAP-CA-2024-155571

PATIENT

DRUGS (2)
  1. KUVAN [Suspect]
     Active Substance: SAPROPTERIN DIHYDROCHLORIDE
     Indication: Phenylketonuria
     Dosage: 1500 MILLIGRAM, QD
     Route: 048
     Dates: start: 20111102
  2. VITAMIN D [Concomitant]
     Active Substance: VITAMIN D NOS
     Indication: Product used for unknown indication
     Dosage: 2000 INTERNATIONAL UNIT, QD

REACTIONS (4)
  - Acute lymphocytic leukaemia [Recovered/Resolved]
  - Tonsillitis [Unknown]
  - COVID-19 [Unknown]
  - Headache [Unknown]
